FAERS Safety Report 4763687-X (Version None)
Quarter: 2005Q3

REPORT INFORMATION
  Report Type: 
  Country: None (occurrence: None)
  Receive Date: 20050908
  Receipt Date: 20050902
  Transmission Date: 20060218
  Serious: Yes (Hospitalization)
  Sender: FDA-Public Use
  Company Number: 181

PATIENT
  Age: 69 Year
  Sex: Male

DRUGS (1)
  1. ALKERAN [Suspect]
     Indication: MULTIPLE MYELOMA
     Route: 065
     Dates: start: 20040507, end: 20040701

REACTIONS (6)
  - ERUCTATION [None]
  - HYPERSOMNIA [None]
  - PULMONARY THROMBOSIS [None]
  - SOMNOLENCE [None]
  - THROMBOSIS [None]
  - WEIGHT DECREASED [None]
